FAERS Safety Report 21699481 (Version 2)
Quarter: 2023Q1

REPORT INFORMATION
  Report Type: Report from Study
  Country: US (occurrence: US)
  Receive Date: 20221208
  Receipt Date: 20230201
  Transmission Date: 20230418
  Serious: Yes (Other)
  Sender: FDA-Public Use
  Company Number: US-JNJFOC-20221208525

PATIENT
  Age: 47 Year
  Sex: Female

DRUGS (11)
  1. SPRAVATO [Suspect]
     Active Substance: ESKETAMINE
     Indication: Major depression
     Dosage: ^56 MG, 3 TOTAL DOSES^
     Dates: start: 20221108, end: 20221122
  2. SPRAVATO [Suspect]
     Active Substance: ESKETAMINE
     Indication: Depression
     Dosage: RECENT DOSE ON 02-DEC-2022?^84 MG, 2 TOTAL DOSES^
     Dates: start: 20221129
  3. SPRAVATO [Suspect]
     Active Substance: ESKETAMINE
     Dates: start: 20230106
  4. CYMBALTA [Concomitant]
     Active Substance: DULOXETINE HYDROCHLORIDE
     Indication: Depression
  5. ANTABUSE [Concomitant]
     Active Substance: DISULFIRAM
     Dosage: 250 (UNSPECIFIED UNITS)
  6. LAMICTAL [Concomitant]
     Active Substance: LAMOTRIGINE
  7. KLONOPIN [Concomitant]
     Active Substance: CLONAZEPAM
  8. OMEPRAZOLE [Concomitant]
     Active Substance: OMEPRAZOLE
     Dosage: 40 (UNSPECIFIED UNITS)
  9. ERGOCALCIFEROL [Concomitant]
     Active Substance: ERGOCALCIFEROL
  10. CALCIUM\CHOLECALCIFEROL [Concomitant]
     Active Substance: CALCIUM\CHOLECALCIFEROL
  11. VITAMIN B12 [Concomitant]
     Active Substance: CYANOCOBALAMIN

REACTIONS (4)
  - Bladder disorder [Not Recovered/Not Resolved]
  - Micturition urgency [Not Recovered/Not Resolved]
  - Constipation [Unknown]
  - Feeling abnormal [Unknown]

NARRATIVE: CASE EVENT DATE: 20221118
